FAERS Safety Report 9720209 (Version 1)
Quarter: 2013Q4

REPORT INFORMATION
  Report Type: Spontaneous
  Country: BG (occurrence: BG)
  Receive Date: 20131129
  Receipt Date: 20131129
  Transmission Date: 20140711
  Serious: Yes (Other)
  Sender: FDA-Public Use
  Company Number: BG-ASTRAZENECA-2013SE86223

PATIENT
  Age: 55 Year
  Sex: Female

DRUGS (2)
  1. NEXIUM [Suspect]
     Route: 048
  2. ANTIBIOTICS [Concomitant]

REACTIONS (2)
  - Oedema [Unknown]
  - Rash [Unknown]
